FAERS Safety Report 14338716 (Version 1)
Quarter: 2017Q4

REPORT INFORMATION
  Report Type: Spontaneous
  Country: DE (occurrence: DE)
  Receive Date: 20171229
  Receipt Date: 20171229
  Transmission Date: 20180321
  Serious: Yes (Hospitalization)
  Sender: FDA-Public Use
  Company Number: DE-SA-2017SA234664

PATIENT
  Age: 52 Year
  Sex: Female
  Weight: 95 kg

DRUGS (7)
  1. FOLINIC ACID [Concomitant]
     Active Substance: LEUCOVORIN
     Indication: COLORECTAL CANCER METASTATIC
     Dosage: PORT
     Dates: start: 201710, end: 201710
  2. METOPROLOL. [Concomitant]
     Active Substance: METOPROLOL
     Indication: HYPERTENSION
     Route: 048
     Dates: start: 2015
  3. ZALTRAP [Suspect]
     Active Substance: ZIV-AFLIBERCEPT
     Indication: COLORECTAL CANCER METASTATIC
     Dosage: PORT
     Dates: start: 201710, end: 201710
  4. 5-FU [Concomitant]
     Active Substance: FLUOROURACIL
     Indication: COLORECTAL CANCER METASTATIC
     Dosage: PORT
     Route: 040
     Dates: start: 201710, end: 201710
  5. IRINOTECAN [Concomitant]
     Active Substance: IRINOTECAN
     Indication: COLORECTAL CANCER METASTATIC
     Dosage: PORT
     Dates: start: 201710, end: 201710
  6. 5-FU [Concomitant]
     Active Substance: FLUOROURACIL
     Indication: COLORECTAL CANCER METASTATIC
     Dosage: PORT
     Dates: start: 201710, end: 201710
  7. ZALTRAP [Suspect]
     Active Substance: ZIV-AFLIBERCEPT
     Indication: COLORECTAL CANCER METASTATIC
     Dosage: PORT
     Dates: start: 20170821, end: 20170821

REACTIONS (6)
  - Oropharyngeal pain [Unknown]
  - Dysphagia [Recovering/Resolving]
  - Oesophageal disorder [Unknown]
  - Mucosal inflammation [Recovering/Resolving]
  - Burning sensation [Unknown]
  - Seizure [Recovered/Resolved]

NARRATIVE: CASE EVENT DATE: 20171011
